FAERS Safety Report 5306192-4 (Version None)
Quarter: 2007Q2

REPORT INFORMATION
  Report Type: 
  Country: None (occurrence: None)
  Receive Date: 20070424
  Receipt Date: 20070416
  Transmission Date: 20071010
  Serious: Yes (Hospitalization)
  Sender: FDA-Public Use
  Company Number: GB-ROCHE-493063

PATIENT
  Age: 60 Year
  Sex: Male
  Weight: 52 kg

DRUGS (5)
  1. CAPECITABINE [Suspect]
     Dosage: GIVEN SPLIT IN TWO SEPARATE DAILY DOSES FOR 14 DAYS FOLLOWED BY A WEEK REST.
     Route: 048
     Dates: start: 20030610
  2. GEMCITABINE HCL [Suspect]
     Dosage: GIVEN ON DAYS ONE AND EIGHT OF EACH THREE-WEEK-CYCLE.
     Route: 042
     Dates: start: 20030610
  3. OMEPRAZOLE [Concomitant]
     Route: 048
  4. CYCLIZINE [Concomitant]
     Indication: NAUSEA
     Route: 048
  5. FENTANYL [Concomitant]
     Route: 062

REACTIONS (2)
  - ANAEMIA [None]
  - CELLULITIS [None]
